FAERS Safety Report 5956826-6 (Version None)
Quarter: 2008Q4

REPORT INFORMATION
  Report Type: 
  Country: None (occurrence: None)
  Receive Date: 20081106
  Receipt Date: 20080805
  Transmission Date: 20090506
  Serious: Yes (Hospitalization)
  Sender: FDA-Public Use
  Company Number: ZYD-AE-08-107

PATIENT
  Age: 50 Year
  Sex: Male

DRUGS (9)
  1. RIBAVIRIN [Suspect]
     Indication: HEPATITIS C
     Dosage: 600MG (2TABS QD) - ORAL
     Route: 048
     Dates: start: 20071129, end: 20080505
  2. PEG INTERFERON ALFA 2A [Suspect]
     Indication: HEPATITIS C
     Dosage: 180 MCG WEEKLY - SQ
     Dates: start: 20071129, end: 20080505
  3. VIDEX EC [Suspect]
     Indication: HIV TEST POSITIVE
     Dosage: 250MG DAILY - ORAL
     Route: 048
     Dates: start: 20060330, end: 20080505
  4. MARAVIROC [Concomitant]
  5. KALETRA [Concomitant]
  6. TRUVADA [Concomitant]
  7. PROTONIX [Concomitant]
  8. SPIRONOLACTONE [Concomitant]
  9. PROPRANOLOL HYDROCHLORIDE [Concomitant]

REACTIONS (4)
  - ANAEMIA [None]
  - ASTHENIA [None]
  - DECREASED APPETITE [None]
  - PANCREATITIS [None]
